FAERS Safety Report 25668538 (Version 3)
Quarter: 2025Q3

REPORT INFORMATION
  Report Type: Report from Study
  Country: US (occurrence: US)
  Receive Date: 20250812
  Receipt Date: 20250926
  Transmission Date: 20251021
  Serious: No
  Sender: SUNOVION
  Company Number: US-SUMITOMO PHARMA SWITZERLAND GMBH-2025SPA007535

PATIENT
  Age: 56 Year
  Sex: Male

DRUGS (9)
  1. ORGOVYX [Suspect]
     Active Substance: RELUGOLIX
     Indication: Prostate cancer
     Dosage: 120 MG, QD
     Route: 048
     Dates: start: 202505
  2. ORGOVYX [Suspect]
     Active Substance: RELUGOLIX
     Indication: Prostate cancer stage IV
  3. ATORVASTATIN CALCIUM [Concomitant]
     Active Substance: ATORVASTATIN CALCIUM
     Route: 048
  4. ERLEADA [Concomitant]
     Active Substance: APALUTAMIDE
  5. LISINOPRIL [Concomitant]
     Active Substance: LISINOPRIL
     Route: 048
  6. METOPROLOL TARTRATE [Concomitant]
     Active Substance: METOPROLOL TARTRATE
     Route: 048
  7. PHENAZOPYRIDINE HCL [Concomitant]
     Active Substance: PHENAZOPYRIDINE HYDROCHLORIDE
     Route: 048
  8. PUMPKIN SEED OIL [Concomitant]
     Active Substance: PUMPKIN SEED OIL
     Route: 048
  9. TAMSULOSIN HYDROCHLORIDE [Concomitant]
     Active Substance: TAMSULOSIN HYDROCHLORIDE
     Route: 048

REACTIONS (6)
  - Cholelithiasis [Unknown]
  - Dysuria [Unknown]
  - Pain [Recovering/Resolving]
  - Discomfort [Recovering/Resolving]
  - Urinary tract infection [Unknown]
  - Incorrect dose administered [Recovered/Resolved]
